FAERS Safety Report 23153766 (Version 1)
Quarter: 2023Q4

REPORT INFORMATION
  Report Type: Spontaneous
  Country: US (occurrence: US)
  Receive Date: 20231107
  Receipt Date: 20231107
  Transmission Date: 20240110
  Serious: No
  Sender: FDA-Public Use
  Company Number: US-BRISTOL-MYERS SQUIBB COMPANY-2023-158540

PATIENT
  Age: 62 Year
  Sex: Male

DRUGS (1)
  1. LENALIDOMIDE [Suspect]
     Active Substance: LENALIDOMIDE
     Indication: Plasma cell leukaemia
     Dosage: FREQ -TAKE 1 CAPSULE (5MG TOTAL) BY MOUTH EVERY DAY FOR 28 DAYS
     Route: 048
     Dates: start: 20221115

REACTIONS (1)
  - COVID-19 [Recovering/Resolving]
